FAERS Safety Report 8583358-1 (Version None)
Quarter: 2012Q3

REPORT INFORMATION
  Report Type: 
  Country: None (occurrence: None)
  Receive Date: 20120809
  Receipt Date: 20120725
  Transmission Date: 20120928
  Serious: Yes (Other)
  Sender: FDA-Public Use
  Company Number: JP-GILEAD-2012-0051456

PATIENT
  Sex: Male

DRUGS (12)
  1. MUCOSTA [Concomitant]
     Dosage: 100MG IN THE MORNING
     Route: 048
     Dates: start: 20120526
  2. MAGNESIUM OXIDE [Concomitant]
     Dosage: 300MG THREE TIMES PER DAY
     Route: 048
     Dates: start: 20120526
  3. ALPRAZOLAM [Concomitant]
     Indication: PRODUCT USED FOR UNKNOWN INDICATION
     Route: 048
  4. ZOLPIDEM [Concomitant]
     Dosage: 5MG AT NIGHT
     Route: 048
  5. HEPSERA [Suspect]
     Indication: HEPATITIS B
     Dosage: UNK
     Route: 048
     Dates: end: 20120106
  6. HEPSERA [Suspect]
     Route: 048
     Dates: end: 20120106
  7. ZOLPIDEM [Concomitant]
     Dosage: 5MG AT NIGHT
     Route: 048
  8. ALPRAZOLAM [Concomitant]
     Route: 048
  9. WARFARIN SODIUM [Concomitant]
     Dosage: 2MG PER DAY
     Route: 048
     Dates: start: 20120526
  10. BARACLUDE                          /03597801/ [Concomitant]
     Indication: HEPATITIS B
     Dosage: UNK
     Dates: start: 20120106
  11. ZOLPIDEM [Concomitant]
     Indication: PRODUCT USED FOR UNKNOWN INDICATION
     Route: 048
  12. ALPRAZOLAM [Concomitant]
     Route: 048

REACTIONS (7)
  - TUBULOINTERSTITIAL NEPHRITIS [None]
  - RENAL DISORDER [None]
  - BLOOD POTASSIUM DECREASED [None]
  - BLOOD ALKALINE PHOSPHATASE INCREASED [None]
  - FANCONI SYNDROME [None]
  - BLOOD CREATININE INCREASED [None]
  - BLOOD PHOSPHORUS DECREASED [None]
